FAERS Safety Report 9556982 (Version 1)
Quarter: 2013Q3

REPORT INFORMATION
  Report Type: Spontaneous
  Country: US (occurrence: US)
  Receive Date: 20130926
  Receipt Date: 20130926
  Transmission Date: 20140515
  Serious: No
  Sender: FDA-Public Use
  Company Number: US-B.I. PHARMACEUTICALS,INC./RIDGEFIELD-2013-BI-29320BP

PATIENT
  Sex: Male

DRUGS (1)
  1. ZANTAC (RANITIDINE HYDROCHLORIDE) [Suspect]
     Indication: GASTRITIS
     Route: 048
     Dates: start: 201307, end: 201307

REACTIONS (5)
  - Tremor [Recovered/Resolved]
  - Palpitations [Recovered/Resolved]
  - Mental impairment [Recovered/Resolved]
  - Headache [Recovered/Resolved]
  - Off label use [Recovered/Resolved]
